FAERS Safety Report 16429810 (Version 2)
Quarter: 2019Q3

REPORT INFORMATION
  Report Type: Report from Study
  Country: CA (occurrence: CA)
  Receive Date: 20190614
  Receipt Date: 20190923
  Transmission Date: 20191004
  Serious: Yes (Death, Other)
  Sender: FDA-Public Use
  Company Number: CA-GLAXOSMITHKLINE-CA2019GSK105150

PATIENT
  Sex: Male

DRUGS (1)
  1. MEPOLIZUMAB [Suspect]
     Active Substance: MEPOLIZUMAB
     Indication: ASTHMA
     Dosage: 100 MG, Z MONTHLY
     Route: 042
     Dates: start: 20180726

REACTIONS (4)
  - Pneumothorax [Fatal]
  - Multiple organ dysfunction syndrome [Fatal]
  - Coma [Unknown]
  - Cardiac failure [Fatal]
